FAERS Safety Report 14632936 (Version 1)
Quarter: 2018Q1

REPORT INFORMATION
  Report Type: Spontaneous
  Country: US (occurrence: US)
  Receive Date: 20180313
  Receipt Date: 20180313
  Transmission Date: 20180509
  Serious: No
  Sender: FDA-Public Use
  Company Number: US-SUNOVION-2018SUN000789

PATIENT
  Sex: Female

DRUGS (1)
  1. LUNESTA [Suspect]
     Active Substance: ESZOPICLONE
     Dosage: 2 MG, UNK
     Route: 048
     Dates: start: 201802

REACTIONS (2)
  - Dry mouth [Unknown]
  - Dysgeusia [Unknown]

NARRATIVE: CASE EVENT DATE: 201802
